FAERS Safety Report 7806729-7 (Version None)
Quarter: 2011Q4

REPORT INFORMATION
  Report Type: 
  Country: None (occurrence: None)
  Receive Date: 20111011
  Receipt Date: 20111006
  Transmission Date: 20120403
  Serious: Yes (Death)
  Sender: FDA-Public Use
  Company Number: PHHY2011EC88614

PATIENT
  Sex: Female

DRUGS (3)
  1. PLAVIX [Concomitant]
     Dosage: UNK
  2. ANTIARRHYTHMICS [Concomitant]
     Dosage: UNK
  3. EXFORGE [Suspect]
     Indication: HYPERTENSION
     Dosage: 01 TABLET DAILY
     Dates: start: 20080523

REACTIONS (3)
  - MYOCARDIAL INFARCTION [None]
  - CONCOMITANT DISEASE PROGRESSION [None]
  - ARRHYTHMIA [None]
